FAERS Safety Report 21000402 (Version 2)
Quarter: 2022Q3

REPORT INFORMATION
  Report Type: Spontaneous
  Country: IT (occurrence: IT)
  Receive Date: 20220623
  Receipt Date: 20220701
  Transmission Date: 20221027
  Serious: Yes (Hospitalization)
  Sender: FDA-Public Use
  Company Number: IT-ALXN-A202206922

PATIENT
  Age: 46 Year
  Sex: Female
  Weight: 86 kg

DRUGS (6)
  1. SOLIRIS [Suspect]
     Active Substance: ECULIZUMAB
     Dosage: 1200 MG, Q2W
     Route: 065
  2. SOLIRIS [Suspect]
     Active Substance: ECULIZUMAB
     Indication: Neuromyelitis optica spectrum disorder
     Dosage: 900 MG, QW
     Route: 065
     Dates: start: 20210916
  3. ADALAT [Concomitant]
     Active Substance: NIFEDIPINE
     Indication: Hypertension
     Dosage: 30 MG, UNK
     Route: 065
  4. DIURESIX                           /01036501/ [Concomitant]
     Indication: Hypertension
     Dosage: 10 MG, UNK
     Route: 065
  5. INSULIN NOS [Concomitant]
     Active Substance: INSULIN NOS
     Indication: Product used for unknown indication
     Dosage: UNK
     Route: 065
  6. TEGRETOL [Concomitant]
     Active Substance: CARBAMAZEPINE
     Indication: Muscle spasms
     Dosage: 200 MG, BID
     Route: 065

REACTIONS (4)
  - COVID-19 [Recovered/Resolved]
  - Escherichia infection [Recovered/Resolved]
  - SARS-CoV-2 test positive [Unknown]
  - Musculoskeletal stiffness [Recovered/Resolved]

NARRATIVE: CASE EVENT DATE: 20220523
